FAERS Safety Report 8268285-1 (Version None)
Quarter: 2012Q2

REPORT INFORMATION
  Report Type: 
  Country: None (occurrence: None)
  Receive Date: 20120409
  Receipt Date: 20120403
  Transmission Date: 20120825
  Serious: Yes (Hospitalization)
  Sender: FDA-Public Use
  Company Number: PHHY2012CZ014615

PATIENT
  Age: 15 Year
  Sex: Female

DRUGS (5)
  1. PRIMIDONE [Interacting]
     Indication: EPILEPSY
  2. CARBAMAZEPINE [Interacting]
     Indication: EPILEPSY
  3. PHENOBARBITAL TAB [Interacting]
     Dosage: 100 MG, QD
  4. PHENOBARBITAL TAB [Interacting]
     Indication: EPILEPSY
     Dosage: 300 MG, QD
     Route: 042
  5. VALPROIC ACID [Suspect]
     Indication: EPILEPSY

REACTIONS (7)
  - DRUG INTERACTION [None]
  - ANTICONVULSANT DRUG LEVEL DECREASED [None]
  - HALLUCINATION [None]
  - ALTERED STATE OF CONSCIOUSNESS [None]
  - DELIRIUM [None]
  - CONVULSION [None]
  - ANTICONVULSANT DRUG LEVEL INCREASED [None]
